FAERS Safety Report 7519721-7 (Version None)
Quarter: 2011Q2

REPORT INFORMATION
  Report Type: 
  Country: None (occurrence: None)
  Receive Date: 20110602
  Receipt Date: 20110527
  Transmission Date: 20111010
  Serious: Yes (Hospitalization, Other)
  Sender: FDA-Public Use
  Company Number: FR-PFIZER INC-2011021402

PATIENT
  Age: 69 Year
  Sex: Male
  Weight: 78 kg

DRUGS (6)
  1. DIGOXIN [Concomitant]
     Indication: ARRHYTHMIA
     Dosage: 0.25 MG, 1X/DAY
     Route: 048
     Dates: start: 20070501
  2. PREVISCAN [Concomitant]
     Dosage: 20 MG, 1X/DAY
     Route: 048
     Dates: start: 20070501
  3. TEMERIT [Concomitant]
     Indication: HYPERTENSION
     Dosage: 1.5 DF, 1X/DAY
     Route: 048
     Dates: start: 20070501
  4. INSPRA [Suspect]
     Indication: CARDIAC FAILURE CONGESTIVE
     Dosage: 25 MG, 1X/DAY
     Route: 048
     Dates: start: 20090701
  5. PANDEMRIX [Suspect]
     Indication: ANTIVIRAL PROPHYLAXIS
     Dosage: 1 DF, SINGLE
     Route: 030
     Dates: start: 20091201
  6. ATACAND [Concomitant]
     Indication: HYPERTENSION
     Dosage: 1 DF, 1X/DAY
     Route: 048
     Dates: start: 20070501

REACTIONS (3)
  - TESTICULAR SWELLING [None]
  - TESTICULAR SEMINOMA (PURE) STAGE II [None]
  - TESTICULAR MASS [None]
